FAERS Safety Report 4926290-4 (Version None)
Quarter: 2006Q1

REPORT INFORMATION
  Report Type: 
  Country: None (occurrence: None)
  Receive Date: 20060228
  Receipt Date: 20051229
  Transmission Date: 20060701
  Serious: No
  Sender: FDA-Public Use
  Company Number: US-GLAXOSMITHKLINE-A0587357A

PATIENT
  Age: 55 Year
  Sex: Female

DRUGS (3)
  1. LAMICTAL [Suspect]
     Dosage: 25MG PER DAY
     Route: 048
  2. ATIVAN [Concomitant]
  3. ESTROGEN [Concomitant]

REACTIONS (3)
  - HEADACHE [None]
  - RASH ERYTHEMATOUS [None]
  - RASH PRURITIC [None]
